FAERS Safety Report 6736111-5 (Version None)
Quarter: 2010Q2

REPORT INFORMATION
  Report Type: 
  Country: None (occurrence: None)
  Receive Date: 20100521
  Receipt Date: 20100514
  Transmission Date: 20101027
  Serious: Yes (Hospitalization)
  Sender: FDA-Public Use
  Company Number: US-ROCHE-703660

PATIENT
  Sex: Female
  Weight: 71.9 kg

DRUGS (4)
  1. BEVACIZUMAB [Suspect]
     Indication: NON-SMALL CELL LUNG CANCER STAGE IV
     Route: 042
     Dates: start: 20091008
  2. PACLITAXEL [Suspect]
     Indication: NON-SMALL CELL LUNG CANCER STAGE IV
     Route: 042
     Dates: start: 20091008
  3. CARBOPLATIN [Suspect]
     Indication: NON-SMALL CELL LUNG CANCER STAGE IV
     Dosage: DOSE: 6 AUC
     Route: 042
     Dates: start: 20091008
  4. LORTAB [Concomitant]
     Indication: PAIN
     Dosage: DOSE: 5/325 MG FREQUENCY: EVERY 2-3 HOURS AS NEEDED
     Route: 048

REACTIONS (1)
  - JAUNDICE [None]
